FAERS Safety Report 25667943 (Version 2)
Quarter: 2025Q3

REPORT INFORMATION
  Report Type: Spontaneous
  Country: US (occurrence: US)
  Receive Date: 20250812
  Receipt Date: 20250813
  Transmission Date: 20251021
  Serious: No
  Sender: NOVARTIS
  Company Number: US-002147023-NVSC2025US121649

PATIENT
  Sex: Male

DRUGS (1)
  1. COSENTYX [Suspect]
     Active Substance: SECUKINUMAB
     Indication: Product used for unknown indication
     Route: 065

REACTIONS (17)
  - Asthenia [Unknown]
  - Myositis [Unknown]
  - Arthralgia [Unknown]
  - Musculoskeletal chest pain [Unknown]
  - Illness [Unknown]
  - Arthritis [Unknown]
  - Bedridden [Unknown]
  - Lower limb fracture [Unknown]
  - Diarrhoea [Unknown]
  - Constipation [Unknown]
  - Skin disorder [Unknown]
  - Hypertrichosis [Unknown]
  - Genital atrophy [Unknown]
  - Fatigue [Unknown]
  - Arthropathy [Unknown]
  - Cardiac disorder [Unknown]
  - Pain [Unknown]
